FAERS Safety Report 8580920-7 (Version None)
Quarter: 2012Q3

REPORT INFORMATION
  Report Type: 
  Country: None (occurrence: None)
  Receive Date: 20120726
  Receipt Date: 20120719
  Transmission Date: 20120928
  Serious: No
  Sender: FDA-Public Use
  Company Number: 1207DEU007012

PATIENT
  Age: 2 Year
  Sex: Male

DRUGS (1)
  1. KEIMAX (CEFTIBUTEN) ORAL SUSPENSION [Suspect]
     Indication: URINARY TRACT INFECTION
     Dates: start: 20120707, end: 20120715

REACTIONS (3)
  - MUCOUS STOOLS [None]
  - HAEMATOCHEZIA [None]
  - PYREXIA [None]
